FAERS Safety Report 9799641 (Version 2)
Quarter: 2014Q1

REPORT INFORMATION
  Report Type: Spontaneous
  Country: US (occurrence: US)
  Receive Date: 20140106
  Receipt Date: 20140207
  Transmission Date: 20141002
  Serious: No
  Sender: FDA-Public Use
  Company Number: US-PFIZER INC-2014001259

PATIENT
  Age: 68 Year
  Sex: Female

DRUGS (13)
  1. CELEBREX [Suspect]
     Dosage: UNK
     Dates: end: 2000
  2. DIFLUCAN [Suspect]
     Dosage: UNK
  3. ZOLOFT [Suspect]
     Dosage: UNK
  4. ADVIL [Suspect]
     Dosage: UNK
  5. VIOXX [Suspect]
     Dosage: UNK
  6. ERYTHROMYCIN [Suspect]
     Dosage: UNK
  7. BENADRYL [Suspect]
     Dosage: UNK
  8. ASA [Suspect]
     Dosage: UNK
  9. ACTOS [Suspect]
     Dosage: UNK
  10. AVANDIA [Suspect]
     Dosage: UNK
  11. LEVAQUIN [Suspect]
     Dosage: UNK
  12. PERCOCET [Suspect]
     Dosage: UNK
  13. LORCET [Suspect]
     Dosage: UNK

REACTIONS (1)
  - Drug hypersensitivity [Unknown]
